FAERS Safety Report 22860650 (Version 13)
Quarter: 2024Q3

REPORT INFORMATION
  Report Type: Spontaneous
  Country: CA (occurrence: CA)
  Receive Date: 20230824
  Receipt Date: 20240902
  Transmission Date: 20241017
  Serious: Yes (Death, Other)
  Sender: BRISTOL MYERS SQUIBB
  Company Number: CA-BRISTOL-MYERS SQUIBB COMPANY-2023-118555

PATIENT
  Age: 40 Year
  Sex: Female
  Weight: 96 kg

DRUGS (764)
  1. ORENCIA [Suspect]
     Active Substance: ABATACEPT
     Indication: Rheumatoid arthritis
     Route: 042
  2. ORENCIA [Suspect]
     Active Substance: ABATACEPT
     Route: 042
  3. ORENCIA [Suspect]
     Active Substance: ABATACEPT
     Route: 042
  4. ORENCIA [Suspect]
     Active Substance: ABATACEPT
     Route: 042
  5. ORENCIA [Suspect]
     Active Substance: ABATACEPT
     Route: 042
  6. TRIAMCINOLONE ACETONIDE [Suspect]
     Active Substance: TRIAMCINOLONE ACETONIDE
     Indication: Rheumatoid arthritis
     Dosage: SUSPENSION INTRA ARTICULAR DOSAGE FORM
     Route: 014
  7. TRIAMCINOLONE ACETONIDE [Suspect]
     Active Substance: TRIAMCINOLONE ACETONIDE
  8. TRIAMCINOLONE ACETONIDE [Suspect]
     Active Substance: TRIAMCINOLONE ACETONIDE
  9. TRIAMCINOLONE ACETONIDE [Suspect]
     Active Substance: TRIAMCINOLONE ACETONIDE
     Dosage: SUSPENSION INTRA ARTICULAR DOSAGE FORM
     Route: 014
  10. ORENCIA [Suspect]
     Active Substance: ABATACEPT
     Indication: Rheumatoid arthritis
     Route: 058
  11. ORENCIA [Suspect]
     Active Substance: ABATACEPT
     Route: 058
  12. ORENCIA [Suspect]
     Active Substance: ABATACEPT
     Route: 058
  13. ORENCIA [Suspect]
     Active Substance: ABATACEPT
     Route: 058
  14. ORENCIA [Suspect]
     Active Substance: ABATACEPT
     Route: 058
  15. ORENCIA [Suspect]
     Active Substance: ABATACEPT
  16. ORENCIA [Suspect]
     Active Substance: ABATACEPT
  17. ORENCIA [Suspect]
     Active Substance: ABATACEPT
  18. ORENCIA [Suspect]
     Active Substance: ABATACEPT
  19. ORENCIA [Suspect]
     Active Substance: ABATACEPT
  20. ORENCIA [Suspect]
     Active Substance: ABATACEPT
     Route: 042
  21. ORENCIA [Suspect]
     Active Substance: ABATACEPT
     Route: 058
  22. ORENCIA [Suspect]
     Active Substance: ABATACEPT
     Route: 058
  23. ORENCIA [Suspect]
     Active Substance: ABATACEPT
     Route: 058
  24. ORENCIA [Suspect]
     Active Substance: ABATACEPT
     Route: 058
  25. FLUTICASONE PROPIONATE [Concomitant]
     Active Substance: FLUTICASONE PROPIONATE
     Indication: Product used for unknown indication
  26. ACETAMINOPHEN [Concomitant]
     Active Substance: ACETAMINOPHEN
     Indication: Rheumatoid arthritis
  27. ACETAMINOPHEN [Concomitant]
     Active Substance: ACETAMINOPHEN
  28. ACETAMINOPHEN [Concomitant]
     Active Substance: ACETAMINOPHEN
  29. ACETAMINOPHEN [Concomitant]
     Active Substance: ACETAMINOPHEN
  30. ACETAMINOPHEN [Concomitant]
     Active Substance: ACETAMINOPHEN
  31. ACETAMINOPHEN [Concomitant]
     Active Substance: ACETAMINOPHEN
  32. ACETAMINOPHEN [Concomitant]
     Active Substance: ACETAMINOPHEN
  33. ACETAMINOPHEN [Concomitant]
     Active Substance: ACETAMINOPHEN
  34. ACETAMINOPHEN [Concomitant]
     Active Substance: ACETAMINOPHEN
  35. ACETAMINOPHEN [Concomitant]
     Active Substance: ACETAMINOPHEN
  36. ACETAMINOPHEN AND CODEINE [Concomitant]
     Active Substance: ACETAMINOPHEN\CODEINE PHOSPHATE
     Indication: Product used for unknown indication
     Dosage: ACETAMINOPHEN+COD.PHOS.ELX, USP160MG-8MG/5ML, DOSAGE FORM: ELIXIR
  37. ACTEMRA [Concomitant]
     Active Substance: TOCILIZUMAB
     Indication: Rheumatoid arthritis
     Route: 058
  38. ACTEMRA [Concomitant]
     Active Substance: TOCILIZUMAB
     Route: 042
  39. ACTEMRA [Concomitant]
     Active Substance: TOCILIZUMAB
     Route: 042
  40. ACTEMRA [Concomitant]
     Active Substance: TOCILIZUMAB
     Route: 042
  41. ACTEMRA [Concomitant]
     Active Substance: TOCILIZUMAB
     Route: 042
  42. ACTEMRA [Concomitant]
     Active Substance: TOCILIZUMAB
  43. ACTEMRA [Concomitant]
     Active Substance: TOCILIZUMAB
     Route: 042
  44. ACTEMRA [Concomitant]
     Active Substance: TOCILIZUMAB
     Route: 042
  45. ACTEMRA [Concomitant]
     Active Substance: TOCILIZUMAB
     Route: 058
  46. ACTEMRA [Concomitant]
     Active Substance: TOCILIZUMAB
     Route: 058
  47. ACTEMRA [Concomitant]
     Active Substance: TOCILIZUMAB
     Route: 058
  48. ACTEMRA [Concomitant]
     Active Substance: TOCILIZUMAB
     Route: 058
  49. ACTEMRA [Concomitant]
     Active Substance: TOCILIZUMAB
  50. ACTEMRA [Concomitant]
     Active Substance: TOCILIZUMAB
  51. ACTEMRA [Concomitant]
     Active Substance: TOCILIZUMAB
  52. ACTEMRA [Concomitant]
     Active Substance: TOCILIZUMAB
     Route: 042
  53. ACTEMRA [Concomitant]
     Active Substance: TOCILIZUMAB
     Route: 061
  54. ACTEMRA [Concomitant]
     Active Substance: TOCILIZUMAB
     Route: 058
  55. ACTEMRA [Concomitant]
     Active Substance: TOCILIZUMAB
     Route: 042
  56. ACTEMRA [Concomitant]
     Active Substance: TOCILIZUMAB
     Route: 017
  57. ACTEMRA [Concomitant]
     Active Substance: TOCILIZUMAB
     Route: 058
  58. ACTEMRA [Concomitant]
     Active Substance: TOCILIZUMAB
     Route: 042
  59. ACTEMRA [Concomitant]
     Active Substance: TOCILIZUMAB
     Route: 058
  60. ACTEMRA [Concomitant]
     Active Substance: TOCILIZUMAB
     Route: 058
  61. ACTEMRA [Concomitant]
     Active Substance: TOCILIZUMAB
     Route: 061
  62. ACTEMRA [Concomitant]
     Active Substance: TOCILIZUMAB
  63. ACTEMRA [Concomitant]
     Active Substance: TOCILIZUMAB
     Route: 058
  64. ACTEMRA [Concomitant]
     Active Substance: TOCILIZUMAB
     Route: 042
  65. ACTEMRA [Concomitant]
     Active Substance: TOCILIZUMAB
     Route: 058
  66. ACTEMRA [Concomitant]
     Active Substance: TOCILIZUMAB
     Route: 058
  67. ACTEMRA [Concomitant]
     Active Substance: TOCILIZUMAB
     Route: 058
  68. ACTEMRA [Concomitant]
     Active Substance: TOCILIZUMAB
  69. ACTEMRA [Concomitant]
     Active Substance: TOCILIZUMAB
     Route: 058
  70. ACTEMRA [Concomitant]
     Active Substance: TOCILIZUMAB
  71. ACTEMRA [Concomitant]
     Active Substance: TOCILIZUMAB
     Route: 042
  72. ACTEMRA [Concomitant]
     Active Substance: TOCILIZUMAB
     Route: 042
  73. ADALIMUMAB [Concomitant]
     Active Substance: ADALIMUMAB
     Indication: Rheumatoid arthritis
     Dosage: SOLUTION SUBCUTANEOUS
     Route: 058
  74. ADALIMUMAB [Concomitant]
     Active Substance: ADALIMUMAB
     Route: 058
  75. ADALIMUMAB [Concomitant]
     Active Substance: ADALIMUMAB
     Dosage: SOLUTION SUBCUTANEOUS
  76. ADALIMUMAB [Concomitant]
     Active Substance: ADALIMUMAB
     Dosage: SOLUTION SUBCUTANEOUS
     Route: 058
  77. AIMOVIG [Concomitant]
     Active Substance: ERENUMAB-AOOE
     Indication: Migraine
  78. AIMOVIG [Concomitant]
     Active Substance: ERENUMAB-AOOE
     Indication: Rheumatoid arthritis
  79. ALENDRONIC ACID [Concomitant]
     Active Substance: ALENDRONIC ACID
     Indication: Rheumatoid arthritis
  80. ALENDRONIC ACID [Concomitant]
     Active Substance: ALENDRONIC ACID
     Route: 048
  81. ALENDRONIC ACID [Concomitant]
     Active Substance: ALENDRONIC ACID
  82. LEFLUNOMIDE [Concomitant]
     Active Substance: LEFLUNOMIDE
     Indication: Rheumatoid arthritis
     Route: 048
  83. LEFLUNOMIDE [Concomitant]
     Active Substance: LEFLUNOMIDE
  84. LEFLUNOMIDE [Concomitant]
     Active Substance: LEFLUNOMIDE
  85. LEFLUNOMIDE [Concomitant]
     Active Substance: LEFLUNOMIDE
  86. LEFLUNOMIDE [Concomitant]
     Active Substance: LEFLUNOMIDE
     Route: 048
  87. LEFLUNOMIDE [Concomitant]
     Active Substance: LEFLUNOMIDE
  88. PREDNISONE [Concomitant]
     Active Substance: PREDNISONE
     Indication: Rheumatoid arthritis
     Route: 048
  89. PREDNISONE [Concomitant]
     Active Substance: PREDNISONE
  90. PREDNISONE [Concomitant]
     Active Substance: PREDNISONE
     Route: 048
  91. PREDNISONE [Concomitant]
     Active Substance: PREDNISONE
  92. PREDNISONE [Concomitant]
     Active Substance: PREDNISONE
     Route: 048
  93. PREDNISONE [Concomitant]
     Active Substance: PREDNISONE
     Route: 048
  94. PREDNISONE [Concomitant]
     Active Substance: PREDNISONE
  95. PREDNISONE [Concomitant]
     Active Substance: PREDNISONE
     Route: 048
  96. PREDNISONE [Concomitant]
     Active Substance: PREDNISONE
  97. PREDNISONE [Concomitant]
     Active Substance: PREDNISONE
  98. PREDNISONE [Concomitant]
     Active Substance: PREDNISONE
     Route: 048
  99. PREDNISONE [Concomitant]
     Active Substance: PREDNISONE
  100. PREDNISONE [Concomitant]
     Active Substance: PREDNISONE
     Route: 048
  101. PREDNISONE [Concomitant]
     Active Substance: PREDNISONE
     Route: 048
  102. PREDNISONE [Concomitant]
     Active Substance: PREDNISONE
  103. PREDNISONE [Concomitant]
     Active Substance: PREDNISONE
     Route: 048
  104. PREDNISONE [Concomitant]
     Active Substance: PREDNISONE
     Route: 048
  105. PREDNISONE [Concomitant]
     Active Substance: PREDNISONE
  106. PREDNISONE [Concomitant]
     Active Substance: PREDNISONE
     Route: 048
  107. APREMILAST [Concomitant]
     Active Substance: APREMILAST
     Indication: Rheumatoid arthritis
  108. APREMILAST [Concomitant]
     Active Substance: APREMILAST
  109. APREMILAST [Concomitant]
     Active Substance: APREMILAST
  110. APREMILAST [Concomitant]
     Active Substance: APREMILAST
  111. ARAVA [Concomitant]
     Active Substance: LEFLUNOMIDE
     Indication: Rheumatoid arthritis
     Route: 048
  112. ARAVA [Concomitant]
     Active Substance: LEFLUNOMIDE
     Route: 048
  113. ARAVA [Concomitant]
     Active Substance: LEFLUNOMIDE
  114. ARAVA [Concomitant]
     Active Substance: LEFLUNOMIDE
     Route: 048
  115. ARAVA [Concomitant]
     Active Substance: LEFLUNOMIDE
     Route: 048
  116. ARAVA [Concomitant]
     Active Substance: LEFLUNOMIDE
     Route: 048
  117. ARAVA [Concomitant]
     Active Substance: LEFLUNOMIDE
  118. ARAVA [Concomitant]
     Active Substance: LEFLUNOMIDE
     Route: 005
  119. ATOMOXETINE [Concomitant]
     Active Substance: ATOMOXETINE HYDROCHLORIDE
     Indication: Migraine
  120. ATOMOXETINE [Concomitant]
     Active Substance: ATOMOXETINE HYDROCHLORIDE
  121. ATOMOXETINE [Concomitant]
     Active Substance: ATOMOXETINE HYDROCHLORIDE
  122. AZATHIOPRINE SODIUM [Concomitant]
     Active Substance: AZATHIOPRINE SODIUM
     Indication: Product used for unknown indication
  123. AZATHIOPRINE SODIUM [Concomitant]
     Active Substance: AZATHIOPRINE SODIUM
  124. BERINERT [Concomitant]
     Active Substance: HUMAN C1-ESTERASE INHIBITOR
     Indication: Product used for unknown indication
  125. BERINERT [Concomitant]
     Active Substance: HUMAN C1-ESTERASE INHIBITOR
  126. BOTULINUM TOXIN TYPE A [Concomitant]
     Active Substance: BOTULINUM TOXIN TYPE A
     Indication: Product used for unknown indication
     Dosage: POWDER FOR SOLUTION
     Route: 030
  127. BOTULINUM TOXIN TYPE A [Concomitant]
     Active Substance: BOTULINUM TOXIN TYPE A
     Dosage: POWDER FOR SOLUTION
  128. BUTRANS [Concomitant]
     Active Substance: BUPRENORPHINE
     Indication: Product used for unknown indication
     Dosage: PATCH
  129. BUTRANS [Concomitant]
     Active Substance: BUPRENORPHINE
     Dosage: PATCH
  130. CANDESARTAN [Concomitant]
     Active Substance: CANDESARTAN
     Indication: Migraine
     Route: 048
  131. CANDESARTAN [Concomitant]
     Active Substance: CANDESARTAN
     Indication: Rheumatoid arthritis
     Route: 048
  132. CANDESARTAN [Concomitant]
     Active Substance: CANDESARTAN
  133. CELEBREX [Concomitant]
     Active Substance: CELECOXIB
     Indication: Rheumatoid arthritis
     Route: 048
  134. CELEBREX [Concomitant]
     Active Substance: CELECOXIB
  135. CERTOLIZUMAB PEGOL [Concomitant]
     Active Substance: CERTOLIZUMAB PEGOL
     Indication: Product used for unknown indication
     Route: 058
  136. CERTOLIZUMAB PEGOL [Concomitant]
     Active Substance: CERTOLIZUMAB PEGOL
     Route: 058
  137. CERTOLIZUMAB PEGOL [Concomitant]
     Active Substance: CERTOLIZUMAB PEGOL
  138. CERTOLIZUMAB PEGOL [Concomitant]
     Active Substance: CERTOLIZUMAB PEGOL
     Route: 016
  139. CERTOLIZUMAB PEGOL [Concomitant]
     Active Substance: CERTOLIZUMAB PEGOL
     Route: 058
  140. CERTOLIZUMAB PEGOL [Concomitant]
     Active Substance: CERTOLIZUMAB PEGOL
     Route: 058
  141. CETIRIZINE HYDROCHLORIDE [Concomitant]
     Active Substance: CETIRIZINE HYDROCHLORIDE
     Indication: Rheumatoid arthritis
  142. CETIRIZINE HYDROCHLORIDE [Concomitant]
     Active Substance: CETIRIZINE HYDROCHLORIDE
  143. CETIRIZINE HYDROCHLORIDE [Concomitant]
     Active Substance: CETIRIZINE HYDROCHLORIDE
     Route: 048
  144. CETIRIZINE HYDROCHLORIDE [Concomitant]
     Active Substance: CETIRIZINE HYDROCHLORIDE
     Route: 048
  145. CETIRIZINE HYDROCHLORIDE [Concomitant]
     Active Substance: CETIRIZINE HYDROCHLORIDE
  146. CETIRIZINE HYDROCHLORIDE [Concomitant]
     Active Substance: CETIRIZINE HYDROCHLORIDE
  147. CETIRIZINE HYDROCHLORIDE [Concomitant]
     Active Substance: CETIRIZINE HYDROCHLORIDE
  148. CETIRIZINE HYDROCHLORIDE [Concomitant]
     Active Substance: CETIRIZINE HYDROCHLORIDE
     Route: 048
  149. CETIRIZINE HYDROCHLORIDE [Concomitant]
     Active Substance: CETIRIZINE HYDROCHLORIDE
  150. CETIRIZINE HYDROCHLORIDE [Concomitant]
     Active Substance: CETIRIZINE HYDROCHLORIDE
     Route: 048
  151. CETIRIZINE HYDROCHLORIDE [Concomitant]
     Active Substance: CETIRIZINE HYDROCHLORIDE
  152. CETIRIZINE HYDROCHLORIDE [Concomitant]
     Active Substance: CETIRIZINE HYDROCHLORIDE
  153. CETIRIZINE HYDROCHLORIDE [Concomitant]
     Active Substance: CETIRIZINE HYDROCHLORIDE
  154. CETIRIZINE HYDROCHLORIDE [Concomitant]
     Active Substance: CETIRIZINE HYDROCHLORIDE
  155. CETIRIZINE HYDROCHLORIDE [Concomitant]
     Active Substance: CETIRIZINE HYDROCHLORIDE
     Route: 048
  156. CETIRIZINE HYDROCHLORIDE [Concomitant]
     Active Substance: CETIRIZINE HYDROCHLORIDE
     Route: 048
  157. CETIRIZINE HYDROCHLORIDE [Concomitant]
     Active Substance: CETIRIZINE HYDROCHLORIDE
     Route: 048
  158. CETIRIZINE HYDROCHLORIDE [Concomitant]
     Active Substance: CETIRIZINE HYDROCHLORIDE
  159. CETIRIZINE HYDROCHLORIDE [Concomitant]
     Active Substance: CETIRIZINE HYDROCHLORIDE
     Route: 048
  160. CETIRIZINE HYDROCHLORIDE [Concomitant]
     Active Substance: CETIRIZINE HYDROCHLORIDE
  161. CETIRIZINE HYDROCHLORIDE [Concomitant]
     Active Substance: CETIRIZINE HYDROCHLORIDE
  162. CETIRIZINE HYDROCHLORIDE [Concomitant]
     Active Substance: CETIRIZINE HYDROCHLORIDE
  163. CETIRIZINE HYDROCHLORIDE [Concomitant]
     Active Substance: CETIRIZINE HYDROCHLORIDE
  164. CETIRIZINE HYDROCHLORIDE [Concomitant]
     Active Substance: CETIRIZINE HYDROCHLORIDE
     Route: 048
  165. CETIRIZINE HYDROCHLORIDE [Concomitant]
     Active Substance: CETIRIZINE HYDROCHLORIDE
     Route: 048
  166. CETIRIZINE HYDROCHLORIDE [Concomitant]
     Active Substance: CETIRIZINE HYDROCHLORIDE
     Route: 048
  167. CETIRIZINE HYDROCHLORIDE [Concomitant]
     Active Substance: CETIRIZINE HYDROCHLORIDE
  168. CETIRIZINE HYDROCHLORIDE [Concomitant]
     Active Substance: CETIRIZINE HYDROCHLORIDE
     Route: 048
  169. CETIRIZINE HYDROCHLORIDE [Concomitant]
     Active Substance: CETIRIZINE HYDROCHLORIDE
     Route: 048
  170. CETIRIZINE HYDROCHLORIDE [Concomitant]
     Active Substance: CETIRIZINE HYDROCHLORIDE
  171. CETIRIZINE HYDROCHLORIDE [Concomitant]
     Active Substance: CETIRIZINE HYDROCHLORIDE
  172. CETIRIZINE HYDROCHLORIDE [Concomitant]
     Active Substance: CETIRIZINE HYDROCHLORIDE
  173. CETIRIZINE HYDROCHLORIDE [Concomitant]
     Active Substance: CETIRIZINE HYDROCHLORIDE
  174. CETIRIZINE HYDROCHLORIDE [Concomitant]
     Active Substance: CETIRIZINE HYDROCHLORIDE
     Route: 048
  175. CETIRIZINE HYDROCHLORIDE [Concomitant]
     Active Substance: CETIRIZINE HYDROCHLORIDE
  176. CETIRIZINE HYDROCHLORIDE [Concomitant]
     Active Substance: CETIRIZINE HYDROCHLORIDE
  177. CETIRIZINE HYDROCHLORIDE [Concomitant]
     Active Substance: CETIRIZINE HYDROCHLORIDE
  178. CETIRIZINE HYDROCHLORIDE [Concomitant]
     Active Substance: CETIRIZINE HYDROCHLORIDE
  179. CETIRIZINE HYDROCHLORIDE [Concomitant]
     Active Substance: CETIRIZINE HYDROCHLORIDE
     Route: 005
  180. CETIRIZINE HYDROCHLORIDE [Concomitant]
     Active Substance: CETIRIZINE HYDROCHLORIDE
  181. CIMZIA [Concomitant]
     Active Substance: CERTOLIZUMAB PEGOL
     Indication: Rheumatoid arthritis
     Route: 058
  182. CIMZIA [Concomitant]
     Active Substance: CERTOLIZUMAB PEGOL
     Indication: Psoriasis
     Route: 058
  183. CIMZIA [Concomitant]
     Active Substance: CERTOLIZUMAB PEGOL
     Route: 058
  184. CIMZIA [Concomitant]
     Active Substance: CERTOLIZUMAB PEGOL
  185. CIMZIA [Concomitant]
     Active Substance: CERTOLIZUMAB PEGOL
     Route: 058
  186. CIMZIA [Concomitant]
     Active Substance: CERTOLIZUMAB PEGOL
  187. CIMZIA [Concomitant]
     Active Substance: CERTOLIZUMAB PEGOL
  188. CIMZIA [Concomitant]
     Active Substance: CERTOLIZUMAB PEGOL
  189. CIMZIA [Concomitant]
     Active Substance: CERTOLIZUMAB PEGOL
  190. CIMZIA [Concomitant]
     Active Substance: CERTOLIZUMAB PEGOL
     Route: 058
  191. CIMZIA [Concomitant]
     Active Substance: CERTOLIZUMAB PEGOL
     Route: 005
  192. CIMZIA [Concomitant]
     Active Substance: CERTOLIZUMAB PEGOL
     Route: 058
  193. CIMZIA [Concomitant]
     Active Substance: CERTOLIZUMAB PEGOL
     Route: 058
  194. CORTISONE [Concomitant]
     Active Substance: CORTISONE
     Indication: Rheumatoid arthritis
     Route: 058
  195. CORTISONE ACETATE [Concomitant]
     Active Substance: CORTISONE ACETATE
     Indication: Rheumatoid arthritis
     Route: 048
  196. CORTISONE ACETATE [Concomitant]
     Active Substance: CORTISONE ACETATE
     Route: 061
  197. CORTISONE ACETATE [Concomitant]
     Active Substance: CORTISONE ACETATE
  198. CORTISONE ACETATE [Concomitant]
     Active Substance: CORTISONE ACETATE
     Route: 061
  199. CORTISONE ACETATE [Concomitant]
     Active Substance: CORTISONE ACETATE
     Route: 048
  200. CORTISONE ACETATE [Concomitant]
     Active Substance: CORTISONE ACETATE
  201. CORTISONE ACETATE [Concomitant]
     Active Substance: CORTISONE ACETATE
     Route: 048
  202. CORTISONE ACETATE [Concomitant]
     Active Substance: CORTISONE ACETATE
  203. CORTISONE ACETATE [Concomitant]
     Active Substance: CORTISONE ACETATE
     Route: 061
  204. COSENTYX [Concomitant]
     Active Substance: SECUKINUMAB
     Indication: Psoriatic arthropathy
  205. COSENTYX [Concomitant]
     Active Substance: SECUKINUMAB
     Indication: Rheumatoid arthritis
  206. COSENTYX [Concomitant]
     Active Substance: SECUKINUMAB
  207. COSENTYX [Concomitant]
     Active Substance: SECUKINUMAB
     Route: 005
  208. DESOXIMETASONE [Concomitant]
     Active Substance: DESOXIMETASONE
     Indication: Rheumatoid arthritis
     Route: 058
  209. DESOXIMETASONE [Concomitant]
     Active Substance: DESOXIMETASONE
     Route: 048
  210. DESOXIMETASONE [Concomitant]
     Active Substance: DESOXIMETASONE
     Route: 048
  211. DESOXIMETASONE [Concomitant]
     Active Substance: DESOXIMETASONE
     Route: 003
  212. DESOXIMETASONE [Concomitant]
     Active Substance: DESOXIMETASONE
     Route: 058
  213. DESOXIMETASONE [Concomitant]
     Active Substance: DESOXIMETASONE
     Route: 048
  214. DESOXIMETASONE [Concomitant]
     Active Substance: DESOXIMETASONE
     Route: 048
  215. DESOXIMETASONE [Concomitant]
     Active Substance: DESOXIMETASONE
     Route: 003
  216. DESOXIMETASONE [Concomitant]
     Active Substance: DESOXIMETASONE
     Route: 058
  217. DESOXIMETASONE [Concomitant]
     Active Substance: DESOXIMETASONE
     Route: 048
  218. DESOXIMETASONE [Concomitant]
     Active Substance: DESOXIMETASONE
     Route: 048
  219. DESOXIMETASONE [Concomitant]
     Active Substance: DESOXIMETASONE
     Route: 058
  220. DESOXIMETASONE [Concomitant]
     Active Substance: DESOXIMETASONE
     Route: 058
  221. DESOXIMETASONE [Concomitant]
     Active Substance: DESOXIMETASONE
     Route: 048
  222. DESOXIMETASONE [Concomitant]
     Active Substance: DESOXIMETASONE
     Route: 003
  223. DESOXIMETASONE [Concomitant]
     Active Substance: DESOXIMETASONE
     Route: 048
  224. DESOXIMETASONE [Concomitant]
     Active Substance: DESOXIMETASONE
     Route: 058
  225. DESOXIMETASONE [Concomitant]
     Active Substance: DESOXIMETASONE
  226. DESOXIMETASONE [Concomitant]
     Active Substance: DESOXIMETASONE
     Route: 058
  227. DESOXIMETASONE [Concomitant]
     Active Substance: DESOXIMETASONE
     Route: 048
  228. DESOXIMETASONE [Concomitant]
     Active Substance: DESOXIMETASONE
     Route: 048
  229. DICLOFENAC DIETHYLAMINE [Concomitant]
     Active Substance: DICLOFENAC DIETHYLAMINE
     Indication: Product used for unknown indication
  230. DICLOFENAC DIETHYLAMINE [Concomitant]
     Active Substance: DICLOFENAC DIETHYLAMINE
  231. DICLOFENAC SODIUM [Concomitant]
     Active Substance: DICLOFENAC\DICLOFENAC SODIUM
     Indication: Product used for unknown indication
     Route: 058
  232. DICLOFENAC SODIUM [Concomitant]
     Active Substance: DICLOFENAC\DICLOFENAC SODIUM
  233. DICLOFENAC SODIUM [Concomitant]
     Active Substance: DICLOFENAC\DICLOFENAC SODIUM
  234. DOMPERIDONE MALEATE [Concomitant]
     Active Substance: DOMPERIDONE MALEATE
     Indication: Product used for unknown indication
  235. DOMPERIDONE MALEATE [Concomitant]
     Active Substance: DOMPERIDONE MALEATE
  236. DOMPERIDONE MALEATE [Concomitant]
     Active Substance: DOMPERIDONE MALEATE
  237. ENBREL [Concomitant]
     Active Substance: BENZYL ALCOHOL\ETANERCEPT
     Indication: Rheumatoid arthritis
     Route: 058
  238. ENBREL [Concomitant]
     Active Substance: BENZYL ALCOHOL\ETANERCEPT
  239. ENBREL [Concomitant]
     Active Substance: BENZYL ALCOHOL\ETANERCEPT
     Route: 058
  240. ENBREL [Concomitant]
     Active Substance: BENZYL ALCOHOL\ETANERCEPT
     Route: 058
  241. ENBREL [Concomitant]
     Active Substance: BENZYL ALCOHOL\ETANERCEPT
     Route: 058
  242. ENBREL [Concomitant]
     Active Substance: BENZYL ALCOHOL\ETANERCEPT
  243. ENBREL [Concomitant]
     Active Substance: BENZYL ALCOHOL\ETANERCEPT
     Route: 058
  244. ENBREL [Concomitant]
     Active Substance: BENZYL ALCOHOL\ETANERCEPT
  245. ENBREL [Concomitant]
     Active Substance: BENZYL ALCOHOL\ETANERCEPT
     Route: 058
  246. ENBREL [Concomitant]
     Active Substance: BENZYL ALCOHOL\ETANERCEPT
  247. ENBREL [Concomitant]
     Active Substance: BENZYL ALCOHOL\ETANERCEPT
  248. ENBREL [Concomitant]
     Active Substance: BENZYL ALCOHOL\ETANERCEPT
     Route: 058
  249. ENBREL [Concomitant]
     Active Substance: BENZYL ALCOHOL\ETANERCEPT
     Route: 058
  250. ENBREL [Concomitant]
     Active Substance: BENZYL ALCOHOL\ETANERCEPT
     Route: 058
  251. ENBREL [Concomitant]
     Active Substance: BENZYL ALCOHOL\ETANERCEPT
     Route: 058
  252. ERELZI [Concomitant]
     Active Substance: ETANERCEPT-SZZS
     Indication: Rheumatoid arthritis
     Route: 058
  253. ERELZI [Concomitant]
     Active Substance: ETANERCEPT-SZZS
     Route: 058
  254. FLUMETHASONE [Concomitant]
     Active Substance: FLUMETHASONE
     Indication: Product used for unknown indication
  255. FLUMETHASONE [Concomitant]
     Active Substance: FLUMETHASONE
  256. FLUMETHASONE PIVALATE [Concomitant]
     Active Substance: FLUMETHASONE PIVALATE
     Indication: Product used for unknown indication
     Route: 003
  257. FLUMETHASONE PIVALATE [Concomitant]
     Active Substance: FLUMETHASONE PIVALATE
  258. FLUMETHASONE PIVALATE [Concomitant]
     Active Substance: FLUMETHASONE PIVALATE
     Route: 058
  259. FLUMETHASONE PIVALATE [Concomitant]
     Active Substance: FLUMETHASONE PIVALATE
  260. FLUMETHASONE PIVALATE [Concomitant]
     Active Substance: FLUMETHASONE PIVALATE
     Route: 048
  261. FOLIC ACID [Concomitant]
     Active Substance: FOLIC ACID
     Indication: Rheumatoid arthritis
     Route: 048
  262. FOLIC ACID [Concomitant]
     Active Substance: FOLIC ACID
     Route: 048
  263. FOLIC ACID [Concomitant]
     Active Substance: FOLIC ACID
     Route: 048
  264. FOLIC ACID [Concomitant]
     Active Substance: FOLIC ACID
     Route: 048
  265. FOLIC ACID [Concomitant]
     Active Substance: FOLIC ACID
     Route: 048
  266. FOLIC ACID [Concomitant]
     Active Substance: FOLIC ACID
     Route: 058
  267. FOLIC ACID [Concomitant]
     Active Substance: FOLIC ACID
     Route: 058
  268. FOLIC ACID [Concomitant]
     Active Substance: FOLIC ACID
     Route: 048
  269. FOLIC ACID [Concomitant]
     Active Substance: FOLIC ACID
  270. FOLIC ACID [Concomitant]
     Active Substance: FOLIC ACID
  271. FOLIC ACID [Concomitant]
     Active Substance: FOLIC ACID
     Route: 048
  272. FOLIC ACID [Concomitant]
     Active Substance: FOLIC ACID
     Route: 048
  273. FOLIC ACID [Concomitant]
     Active Substance: FOLIC ACID
  274. FOLIC ACID [Concomitant]
     Active Substance: FOLIC ACID
  275. FOLIC ACID [Concomitant]
     Active Substance: FOLIC ACID
  276. FOLIC ACID [Concomitant]
     Active Substance: FOLIC ACID
  277. FOLIC ACID [Concomitant]
     Active Substance: FOLIC ACID
  278. FOLIC ACID [Concomitant]
     Active Substance: FOLIC ACID
     Route: 048
  279. FOLIC ACID [Concomitant]
     Active Substance: FOLIC ACID
  280. FOLIC ACID [Concomitant]
     Active Substance: FOLIC ACID
     Route: 058
  281. FOLIC ACID [Concomitant]
     Active Substance: FOLIC ACID
     Route: 048
  282. FOLIC ACID [Concomitant]
     Active Substance: FOLIC ACID
  283. FOLIC ACID [Concomitant]
     Active Substance: FOLIC ACID
  284. FOSAMAX [Concomitant]
     Active Substance: ALENDRONATE SODIUM
     Indication: Rheumatoid arthritis
     Route: 048
  285. FOSAMAX [Concomitant]
     Active Substance: ALENDRONATE SODIUM
     Route: 058
  286. FOSAMAX [Concomitant]
     Active Substance: ALENDRONATE SODIUM
     Route: 016
  287. FOSAMAX [Concomitant]
     Active Substance: ALENDRONATE SODIUM
     Route: 005
  288. FOSAMAX [Concomitant]
     Active Substance: ALENDRONATE SODIUM
     Route: 048
  289. FOSAMAX [Concomitant]
     Active Substance: ALENDRONATE SODIUM
     Route: 058
  290. FOSAMAX [Concomitant]
     Active Substance: ALENDRONATE SODIUM
  291. FOSAMAX [Concomitant]
     Active Substance: ALENDRONATE SODIUM
     Route: 016
  292. GOLD SODIUM THIOMALATE [Concomitant]
     Active Substance: GOLD SODIUM THIOMALATE
     Indication: Product used for unknown indication
     Route: 030
  293. GOLD SODIUM THIOMALATE [Concomitant]
     Active Substance: GOLD SODIUM THIOMALATE
  294. GOLIMUMAB [Concomitant]
     Active Substance: GOLIMUMAB
     Indication: Rheumatoid arthritis
  295. GOLIMUMAB [Concomitant]
     Active Substance: GOLIMUMAB
     Indication: Prostatic specific antigen
     Route: 058
  296. GOLIMUMAB [Concomitant]
     Active Substance: GOLIMUMAB
  297. GOLIMUMAB [Concomitant]
     Active Substance: GOLIMUMAB
  298. GOLIMUMAB [Concomitant]
     Active Substance: GOLIMUMAB
  299. GOLIMUMAB [Concomitant]
     Active Substance: GOLIMUMAB
     Route: 058
  300. HUMIRA [Concomitant]
     Active Substance: ADALIMUMAB
     Indication: Rheumatoid arthritis
     Route: 057
  301. HUMIRA [Concomitant]
     Active Substance: ADALIMUMAB
     Dosage: SOLUTION SUBCUTANEOUS
     Route: 058
  302. HUMIRA [Concomitant]
     Active Substance: ADALIMUMAB
     Route: 058
  303. HUMIRA [Concomitant]
     Active Substance: ADALIMUMAB
     Route: 057
  304. HUMIRA [Concomitant]
     Active Substance: ADALIMUMAB
     Route: 058
  305. HUMIRA [Concomitant]
     Active Substance: ADALIMUMAB
     Route: 057
  306. HUMIRA [Concomitant]
     Active Substance: ADALIMUMAB
     Route: 058
  307. HUMIRA [Concomitant]
     Active Substance: ADALIMUMAB
  308. HUMIRA [Concomitant]
     Active Substance: ADALIMUMAB
     Route: 058
  309. HUMIRA [Concomitant]
     Active Substance: ADALIMUMAB
     Route: 058
  310. HYDROCORTISONE [Concomitant]
     Active Substance: HYDROCORTISONE\HYDROCORTISONE ACETATE
     Indication: Rheumatoid arthritis
     Route: 061
  311. HYDROCORTISONE [Concomitant]
     Active Substance: HYDROCORTISONE\HYDROCORTISONE ACETATE
     Route: 003
  312. HYDROCORTISONE [Concomitant]
     Active Substance: HYDROCORTISONE\HYDROCORTISONE ACETATE
     Route: 058
  313. HYDROXYCHLOROQUINE [Concomitant]
     Active Substance: HYDROXYCHLOROQUINE
     Indication: Rheumatoid arthritis
  314. HYDROXYCHLOROQUINE [Concomitant]
     Active Substance: HYDROXYCHLOROQUINE
     Route: 048
  315. HYDROXYCHLOROQUINE [Concomitant]
     Active Substance: HYDROXYCHLOROQUINE
  316. HYDROXYCHLOROQUINE [Concomitant]
     Active Substance: HYDROXYCHLOROQUINE
     Route: 058
  317. HYDROXYCHLOROQUINE [Concomitant]
     Active Substance: HYDROXYCHLOROQUINE
  318. HYDROXYCHLOROQUINE [Concomitant]
     Active Substance: HYDROXYCHLOROQUINE
     Route: 048
  319. HYDROXYCHLOROQUINE [Concomitant]
     Active Substance: HYDROXYCHLOROQUINE
     Route: 048
  320. HYDROXYCHLOROQUINE [Concomitant]
     Active Substance: HYDROXYCHLOROQUINE
  321. HYDROXYCHLOROQUINE [Concomitant]
     Active Substance: HYDROXYCHLOROQUINE
     Route: 048
  322. HYDROXYCHLOROQUINE [Concomitant]
     Active Substance: HYDROXYCHLOROQUINE
     Route: 058
  323. HYDROXYCHLOROQUINE [Concomitant]
     Active Substance: HYDROXYCHLOROQUINE
     Route: 058
  324. HYDROXYCHLOROQUINE [Concomitant]
     Active Substance: HYDROXYCHLOROQUINE
     Route: 048
  325. HYDROXYCHLOROQUINE [Concomitant]
     Active Substance: HYDROXYCHLOROQUINE
     Route: 048
  326. HYDROXYCHLOROQUINE [Concomitant]
     Active Substance: HYDROXYCHLOROQUINE
     Route: 048
  327. HYDROXYCHLOROQUINE [Concomitant]
     Active Substance: HYDROXYCHLOROQUINE
  328. HYDROXYCHLOROQUINE [Concomitant]
     Active Substance: HYDROXYCHLOROQUINE
     Route: 048
  329. HYDROXYCHLOROQUINE [Concomitant]
     Active Substance: HYDROXYCHLOROQUINE
     Route: 048
  330. HYDROXYCHLOROQUINE [Concomitant]
     Active Substance: HYDROXYCHLOROQUINE
     Route: 058
  331. HYDROXYCHLOROQUINE [Concomitant]
     Active Substance: HYDROXYCHLOROQUINE
  332. HYDROXYCHLOROQUINE [Concomitant]
     Active Substance: HYDROXYCHLOROQUINE
  333. HYDROXYCHLOROQUINE [Concomitant]
     Active Substance: HYDROXYCHLOROQUINE
  334. HYDROXYCHLOROQUINE [Concomitant]
     Active Substance: HYDROXYCHLOROQUINE
  335. HYDROXYCHLOROQUINE [Concomitant]
     Active Substance: HYDROXYCHLOROQUINE
     Route: 048
  336. HYDROXYCHLOROQUINE [Concomitant]
     Active Substance: HYDROXYCHLOROQUINE
  337. HYDROXYCHLOROQUINE [Concomitant]
     Active Substance: HYDROXYCHLOROQUINE
     Route: 005
  338. HYDROXYCHLOROQUINE [Concomitant]
     Active Substance: HYDROXYCHLOROQUINE
     Route: 048
  339. HYDROXYCHLOROQUINE [Concomitant]
     Active Substance: HYDROXYCHLOROQUINE
  340. HYDROXYCHLOROQUINE [Concomitant]
     Active Substance: HYDROXYCHLOROQUINE
     Route: 005
  341. HYDROXYCHLOROQUINE [Concomitant]
     Active Substance: HYDROXYCHLOROQUINE
     Route: 048
  342. HYDROXYCHLOROQUINE [Concomitant]
     Active Substance: HYDROXYCHLOROQUINE
  343. HYDROXYCHLOROQUINE [Concomitant]
     Active Substance: HYDROXYCHLOROQUINE
     Route: 048
  344. HYDROXYCHLOROQUINE [Concomitant]
     Active Substance: HYDROXYCHLOROQUINE
  345. HYDROXYCHLOROQUINE [Concomitant]
     Active Substance: HYDROXYCHLOROQUINE
     Route: 048
  346. HYDROXYCHLOROQUINE [Concomitant]
     Active Substance: HYDROXYCHLOROQUINE
  347. HYDROXYCHLOROQUINE [Concomitant]
     Active Substance: HYDROXYCHLOROQUINE
     Route: 048
  348. HYDROXYCHLOROQUINE SULFATE [Concomitant]
     Active Substance: HYDROXYCHLOROQUINE SULFATE
     Indication: Rheumatoid arthritis
     Route: 048
  349. HYDROXYCHLOROQUINE SULFATE [Concomitant]
     Active Substance: HYDROXYCHLOROQUINE SULFATE
     Route: 048
  350. HYDROXYCHLOROQUINE SULFATE [Concomitant]
     Active Substance: HYDROXYCHLOROQUINE SULFATE
  351. HYDROXYCHLOROQUINE SULFATE [Concomitant]
     Active Substance: HYDROXYCHLOROQUINE SULFATE
     Route: 016
  352. HYDROXYCHLOROQUINE SULFATE [Concomitant]
     Active Substance: HYDROXYCHLOROQUINE SULFATE
     Route: 048
  353. HYDROXYCHLOROQUINE SULFATE [Concomitant]
     Active Substance: HYDROXYCHLOROQUINE SULFATE
     Route: 048
  354. INFLIXIMAB [Concomitant]
     Active Substance: INFLIXIMAB
     Indication: Rheumatoid arthritis
     Route: 042
  355. INFLIXIMAB [Concomitant]
     Active Substance: INFLIXIMAB
     Dosage: CYCLIC
     Route: 042
  356. INFLIXIMAB [Concomitant]
     Active Substance: INFLIXIMAB
     Route: 058
  357. INFLIXIMAB [Concomitant]
     Active Substance: INFLIXIMAB
     Route: 042
  358. INFLIXIMAB [Concomitant]
     Active Substance: INFLIXIMAB
     Route: 042
  359. INFLIXIMAB [Concomitant]
     Active Substance: INFLIXIMAB
  360. INFLIXIMAB [Concomitant]
     Active Substance: INFLIXIMAB
     Route: 042
  361. INFLIXIMAB [Concomitant]
     Active Substance: INFLIXIMAB
     Route: 042
  362. INFLIXIMAB [Concomitant]
     Active Substance: INFLIXIMAB
     Route: 042
  363. KEVZARA [Concomitant]
     Active Substance: SARILUMAB
     Indication: Rheumatoid arthritis
  364. KEVZARA [Concomitant]
     Active Substance: SARILUMAB
  365. LAMICTAL [Concomitant]
     Active Substance: LAMOTRIGINE
     Indication: Product used for unknown indication
     Route: 048
  366. LAMICTAL [Concomitant]
     Active Substance: LAMOTRIGINE
     Route: 048
  367. LAMICTAL [Concomitant]
     Active Substance: LAMOTRIGINE
     Route: 048
  368. LAMICTAL [Concomitant]
     Active Substance: LAMOTRIGINE
     Route: 048
  369. LAMICTAL [Concomitant]
     Active Substance: LAMOTRIGINE
     Route: 048
  370. LAMICTAL [Concomitant]
     Active Substance: LAMOTRIGINE
     Route: 048
  371. LAMICTAL [Concomitant]
     Active Substance: LAMOTRIGINE
     Route: 048
  372. LAMICTAL [Concomitant]
     Active Substance: LAMOTRIGINE
     Route: 048
  373. LAMICTAL [Concomitant]
     Active Substance: LAMOTRIGINE
     Route: 048
  374. LEFLUNOMIDE [Concomitant]
     Active Substance: LEFLUNOMIDE
     Indication: Rheumatoid arthritis
  375. LEFLUNOMIDE [Concomitant]
     Active Substance: LEFLUNOMIDE
  376. LEFLUNOMIDE [Concomitant]
     Active Substance: LEFLUNOMIDE
     Route: 048
  377. LEFLUNOMIDE [Concomitant]
     Active Substance: LEFLUNOMIDE
     Route: 048
  378. LEFLUNOMIDE [Concomitant]
     Active Substance: LEFLUNOMIDE
  379. LEFLUNOMIDE [Concomitant]
     Active Substance: LEFLUNOMIDE
  380. LEFLUNOMIDE [Concomitant]
     Active Substance: LEFLUNOMIDE
  381. LEFLUNOMIDE [Concomitant]
     Active Substance: LEFLUNOMIDE
     Route: 048
  382. LEFLUNOMIDE [Concomitant]
     Active Substance: LEFLUNOMIDE
  383. LEFLUNOMIDE [Concomitant]
     Active Substance: LEFLUNOMIDE
  384. LEFLUNOMIDE [Concomitant]
     Active Substance: LEFLUNOMIDE
     Route: 048
  385. METHOTREXATE [Concomitant]
     Active Substance: METHOTREXATE
     Indication: Rheumatoid arthritis
     Route: 013
  386. METHOTREXATE [Concomitant]
     Active Substance: METHOTREXATE
     Route: 048
  387. METHOTREXATE [Concomitant]
     Active Substance: METHOTREXATE
     Route: 048
  388. METHOTREXATE [Concomitant]
     Active Substance: METHOTREXATE
     Route: 048
  389. METHOTREXATE [Concomitant]
     Active Substance: METHOTREXATE
     Route: 058
  390. METHOTREXATE [Concomitant]
     Active Substance: METHOTREXATE
     Route: 048
  391. METHOTREXATE [Concomitant]
     Active Substance: METHOTREXATE
     Route: 048
  392. METHOTREXATE [Concomitant]
     Active Substance: METHOTREXATE
     Route: 048
  393. METHOTREXATE [Concomitant]
     Active Substance: METHOTREXATE
     Route: 058
  394. METHOTREXATE [Concomitant]
     Active Substance: METHOTREXATE
     Route: 058
  395. METHOTREXATE [Concomitant]
     Active Substance: METHOTREXATE
     Route: 058
  396. METHOTREXATE [Concomitant]
     Active Substance: METHOTREXATE
     Route: 013
  397. METHOTREXATE [Concomitant]
     Active Substance: METHOTREXATE
     Route: 058
  398. METHOTREXATE [Concomitant]
     Active Substance: METHOTREXATE
     Route: 058
  399. METHOTREXATE [Concomitant]
     Active Substance: METHOTREXATE
     Route: 048
  400. METHOTREXATE [Concomitant]
     Active Substance: METHOTREXATE
     Route: 058
  401. METHOTREXATE [Concomitant]
     Active Substance: METHOTREXATE
     Route: 048
  402. METHOTREXATE [Concomitant]
     Active Substance: METHOTREXATE
     Route: 048
  403. METHOTREXATE [Concomitant]
     Active Substance: METHOTREXATE
     Route: 058
  404. METHOTREXATE [Concomitant]
     Active Substance: METHOTREXATE
     Route: 048
  405. METHOTREXATE [Concomitant]
     Active Substance: METHOTREXATE
     Route: 048
  406. METHOTREXATE [Concomitant]
     Active Substance: METHOTREXATE
  407. METHOTREXATE [Concomitant]
     Active Substance: METHOTREXATE
  408. METHOTREXATE [Concomitant]
     Active Substance: METHOTREXATE
     Route: 016
  409. METHOTREXATE [Concomitant]
     Active Substance: METHOTREXATE
     Route: 013
  410. METHOTREXATE [Concomitant]
     Active Substance: METHOTREXATE
     Route: 058
  411. METHOTREXATE [Concomitant]
     Active Substance: METHOTREXATE
     Route: 013
  412. METHOTREXATE [Concomitant]
     Active Substance: METHOTREXATE
  413. METHOTREXATE [Concomitant]
     Active Substance: METHOTREXATE
     Route: 048
  414. METHOTREXATE [Concomitant]
     Active Substance: METHOTREXATE
     Route: 048
  415. METHOTREXATE [Concomitant]
     Active Substance: METHOTREXATE
     Route: 048
  416. METHOTREXATE [Concomitant]
     Active Substance: METHOTREXATE
     Route: 048
  417. METHOTREXATE [Concomitant]
     Active Substance: METHOTREXATE
     Route: 048
  418. METHOTREXATE [Concomitant]
     Active Substance: METHOTREXATE
     Route: 048
  419. METHOTREXATE [Concomitant]
     Active Substance: METHOTREXATE
     Route: 013
  420. METHOTREXATE [Concomitant]
     Active Substance: METHOTREXATE
     Route: 048
  421. METHOTREXATE [Concomitant]
     Active Substance: METHOTREXATE
  422. METHOTREXATE [Concomitant]
     Active Substance: METHOTREXATE
  423. METHOTREXATE [Concomitant]
     Active Substance: METHOTREXATE
  424. METHOTREXATE [Concomitant]
     Active Substance: METHOTREXATE
     Route: 058
  425. METHOTREXATE [Concomitant]
     Active Substance: METHOTREXATE
     Route: 048
  426. METHOTREXATE [Concomitant]
     Active Substance: METHOTREXATE
  427. METHOTREXATE [Concomitant]
     Active Substance: METHOTREXATE
     Route: 048
  428. METHOTREXATE [Concomitant]
     Active Substance: METHOTREXATE
     Route: 048
  429. METHYLPREDNISOLONE [Concomitant]
     Active Substance: METHYLPREDNISOLONE
     Indication: Product used for unknown indication
  430. METHYLPREDNISOLONE [Concomitant]
     Active Substance: METHYLPREDNISOLONE
  431. METHYLPREDNISOLONE SODIUM SUCCINATE [Concomitant]
     Active Substance: METHYLPREDNISOLONE SODIUM SUCCINATE
     Indication: Product used for unknown indication
  432. METHYLPREDNISOLONE SODIUM SUCCINATE [Concomitant]
     Active Substance: METHYLPREDNISOLONE SODIUM SUCCINATE
  433. MINOCYCLINE HYDROCHLORIDE [Concomitant]
     Active Substance: MINOCYCLINE HYDROCHLORIDE
     Indication: Rheumatoid arthritis
  434. MINOCYCLINE [Concomitant]
     Active Substance: MINOCYCLINE HYDROCHLORIDE
     Indication: Product used for unknown indication
  435. MINOCYCLINE [Concomitant]
     Active Substance: MINOCYCLINE HYDROCHLORIDE
  436. MINOCYCLINE HYDROCHLORIDE [Concomitant]
     Active Substance: MINOCYCLINE HYDROCHLORIDE
     Indication: Rheumatoid arthritis
  437. MINOCYCLINE HYDROCHLORIDE [Concomitant]
     Active Substance: MINOCYCLINE HYDROCHLORIDE
  438. MINOCYCLINE HYDROCHLORIDE [Concomitant]
     Active Substance: MINOCYCLINE HYDROCHLORIDE
  439. MYOCHRYSINE [Concomitant]
     Active Substance: GOLD SODIUM THIOMALATE
     Indication: Rheumatoid arthritis
     Dosage: SOLUTION INTRAMUSCULAR
     Route: 030
  440. MYOCHRYSINE [Concomitant]
     Active Substance: GOLD SODIUM THIOMALATE
     Dosage: SOLUTION INTRAMUSCULAR
     Route: 030
  441. MYRBETRIQ [Concomitant]
     Active Substance: MIRABEGRON
     Indication: Product used for unknown indication
     Dosage: TABLET (EXTENDED-RELEASE)
  442. MYRBETRIQ [Concomitant]
     Active Substance: MIRABEGRON
     Dosage: TABLET (EXTENDED-RELEASE)
     Route: 030
  443. MYRBETRIQ [Concomitant]
     Active Substance: MIRABEGRON
     Dosage: TABLET (EXTENDED-RELEASE)
  444. MYRBETRIQ [Concomitant]
     Active Substance: MIRABEGRON
     Dosage: TABLET (EXTENDED-RELEASE)
  445. MYRBETRIQ [Concomitant]
     Active Substance: MIRABEGRON
  446. MYRBETRIQ [Concomitant]
     Active Substance: MIRABEGRON
  447. NAPROXEN [Concomitant]
     Active Substance: NAPROXEN
     Indication: Product used for unknown indication
  448. NAPROXEN [Concomitant]
     Active Substance: NAPROXEN
     Dosage: TABLET (ENTERIC- COATED)
  449. NAPROXEN [Concomitant]
     Active Substance: NAPROXEN
     Indication: Product used for unknown indication
  450. NAPROXEN [Concomitant]
     Active Substance: NAPROXEN
  451. NAPROXEN SODIUM [Concomitant]
     Active Substance: NAPROXEN\NAPROXEN SODIUM
     Indication: Rheumatoid arthritis
  452. NAPROXEN SODIUM [Concomitant]
     Active Substance: NAPROXEN\NAPROXEN SODIUM
  453. NUCALA [Concomitant]
     Active Substance: MEPOLIZUMAB
     Indication: Product used for unknown indication
  454. NUCALA [Concomitant]
     Active Substance: MEPOLIZUMAB
  455. OXYCODONE [Concomitant]
     Active Substance: OXYCODONE
     Indication: Product used for unknown indication
  456. OXYCODONE [Concomitant]
     Active Substance: OXYCODONE
  457. OXYCODONE TEREPHTHALATE [Concomitant]
     Active Substance: OXYCODONE TEREPHTHALATE
     Indication: Product used for unknown indication
  458. OXYCODONE TEREPHTHALATE [Concomitant]
     Active Substance: OXYCODONE TEREPHTHALATE
  459. PHENYLEPHRINE HYDROCHLORIDE [Concomitant]
     Active Substance: PHENYLEPHRINE HYDROCHLORIDE
     Indication: Rheumatoid arthritis
  460. PHENYLEPHRINE HYDROCHLORIDE [Concomitant]
     Active Substance: PHENYLEPHRINE HYDROCHLORIDE
  461. PHTHALYLSULFATHIAZOLE [Concomitant]
     Active Substance: PHTHALYLSULFATHIAZOLE
     Indication: Rheumatoid arthritis
     Route: 048
  462. PHTHALYLSULFATHIAZOLE [Concomitant]
     Active Substance: PHTHALYLSULFATHIAZOLE
     Route: 048
  463. PHTHALYLSULFATHIAZOLE [Concomitant]
     Active Substance: PHTHALYLSULFATHIAZOLE
     Route: 042
  464. PHTHALYLSULFATHIAZOLE [Concomitant]
     Active Substance: PHTHALYLSULFATHIAZOLE
     Route: 058
  465. PHTHALYLSULFATHIAZOLE [Concomitant]
     Active Substance: PHTHALYLSULFATHIAZOLE
     Route: 067
  466. PHTHALYLSULFATHIAZOLE [Concomitant]
     Active Substance: PHTHALYLSULFATHIAZOLE
     Route: 048
  467. PHTHALYLSULFATHIAZOLE [Concomitant]
     Active Substance: PHTHALYLSULFATHIAZOLE
     Route: 048
  468. PHTHALYLSULFATHIAZOLE [Concomitant]
     Active Substance: PHTHALYLSULFATHIAZOLE
  469. PREDNISONE [Concomitant]
     Active Substance: PREDNISONE
     Indication: Rheumatoid arthritis
     Route: 048
  470. PREDNISONE [Concomitant]
     Active Substance: PREDNISONE
     Route: 048
  471. PREDNISONE [Concomitant]
     Active Substance: PREDNISONE
     Route: 048
  472. PREDNISONE [Concomitant]
     Active Substance: PREDNISONE
     Route: 048
  473. PREDNISONE [Concomitant]
     Active Substance: PREDNISONE
  474. PREDNISONE [Concomitant]
     Active Substance: PREDNISONE
  475. PREDNISONE [Concomitant]
     Active Substance: PREDNISONE
  476. PREDNISONE [Concomitant]
     Active Substance: PREDNISONE
     Route: 048
  477. PREDNISONE [Concomitant]
     Active Substance: PREDNISONE
  478. PREDNISONE [Concomitant]
     Active Substance: PREDNISONE
     Route: 048
  479. PREDNISONE [Concomitant]
     Active Substance: PREDNISONE
     Route: 048
  480. PREDNISONE [Concomitant]
     Active Substance: PREDNISONE
  481. PREDNISONE [Concomitant]
     Active Substance: PREDNISONE
  482. PREDNISONE [Concomitant]
     Active Substance: PREDNISONE
  483. PREDNISONE [Concomitant]
     Active Substance: PREDNISONE
     Route: 048
  484. PREDNISONE [Concomitant]
     Active Substance: PREDNISONE
     Route: 048
  485. PREDNISONE [Concomitant]
     Active Substance: PREDNISONE
     Route: 048
  486. PREDNISONE [Concomitant]
     Active Substance: PREDNISONE
  487. PREDNISONE [Concomitant]
     Active Substance: PREDNISONE
  488. PSEUDOEPHEDRINE HYDROCHLORIDE [Concomitant]
     Active Substance: PSEUDOEPHEDRINE HYDROCHLORIDE
     Indication: Rheumatoid arthritis
  489. PSEUDOEPHEDRINE HYDROCHLORIDE [Concomitant]
     Active Substance: PSEUDOEPHEDRINE HYDROCHLORIDE
  490. PSEUDOEPHEDRINE HYDROCHLORIDE [Concomitant]
     Active Substance: PSEUDOEPHEDRINE HYDROCHLORIDE
  491. PSEUDOEPHEDRINE HYDROCHLORIDE [Concomitant]
     Active Substance: PSEUDOEPHEDRINE HYDROCHLORIDE
     Route: 048
  492. PSEUDOEPHEDRINE HYDROCHLORIDE [Concomitant]
     Active Substance: PSEUDOEPHEDRINE HYDROCHLORIDE
     Dosage: LIQUID INTRAMUSCULAR
     Route: 030
  493. PSEUDOEPHEDRINE HYDROCHLORIDE [Concomitant]
     Active Substance: PSEUDOEPHEDRINE HYDROCHLORIDE
  494. PSEUDOEPHEDRINE HYDROCHLORIDE [Concomitant]
     Active Substance: PSEUDOEPHEDRINE HYDROCHLORIDE
  495. PSEUDOEPHEDRINE HYDROCHLORIDE [Concomitant]
     Active Substance: PSEUDOEPHEDRINE HYDROCHLORIDE
  496. PSEUDOEPHEDRINE HYDROCHLORIDE [Concomitant]
     Active Substance: PSEUDOEPHEDRINE HYDROCHLORIDE
  497. RAMIPRIL [Concomitant]
     Active Substance: RAMIPRIL
     Indication: Rheumatoid arthritis
     Route: 016
  498. RAMIPRIL [Concomitant]
     Active Substance: RAMIPRIL
     Route: 042
  499. RAMIPRIL [Concomitant]
     Active Substance: RAMIPRIL
     Route: 016
  500. RANITIDINE [Concomitant]
     Active Substance: RANITIDINE
     Indication: Product used for unknown indication
  501. RANITIDINE [Concomitant]
     Active Substance: RANITIDINE
  502. RANITIDINE [Concomitant]
     Active Substance: RANITIDINE
  503. RANITIDINE [Concomitant]
     Active Substance: RANITIDINE
  504. RANITIDINE [Concomitant]
     Active Substance: RANITIDINE
     Route: 058
  505. RANITIDINE [Concomitant]
     Active Substance: RANITIDINE
     Route: 042
  506. CETIRIZINE HYDROCHLORIDE\PSEUDOEPHEDRINE HYDROCHLORIDE [Concomitant]
     Active Substance: CETIRIZINE HYDROCHLORIDE\PSEUDOEPHEDRINE HYDROCHLORIDE
     Indication: Rheumatoid arthritis
     Route: 042
  507. CETIRIZINE HYDROCHLORIDE\PSEUDOEPHEDRINE HYDROCHLORIDE [Concomitant]
     Active Substance: CETIRIZINE HYDROCHLORIDE\PSEUDOEPHEDRINE HYDROCHLORIDE
     Dosage: TABLET (EXTENDED-RELEASE)
  508. CETIRIZINE HYDROCHLORIDE\PSEUDOEPHEDRINE HYDROCHLORIDE [Concomitant]
     Active Substance: CETIRIZINE HYDROCHLORIDE\PSEUDOEPHEDRINE HYDROCHLORIDE
  509. CETIRIZINE HYDROCHLORIDE\PSEUDOEPHEDRINE HYDROCHLORIDE [Concomitant]
     Active Substance: CETIRIZINE HYDROCHLORIDE\PSEUDOEPHEDRINE HYDROCHLORIDE
  510. REMICADE [Concomitant]
     Active Substance: INFLIXIMAB
     Indication: Rheumatoid arthritis
     Route: 058
  511. REMICADE [Concomitant]
     Active Substance: INFLIXIMAB
     Route: 042
  512. REMICADE [Concomitant]
     Active Substance: INFLIXIMAB
     Route: 042
  513. REMICADE [Concomitant]
     Active Substance: INFLIXIMAB
     Route: 042
  514. REMICADE [Concomitant]
     Active Substance: INFLIXIMAB
  515. REMICADE [Concomitant]
     Active Substance: INFLIXIMAB
     Route: 041
  516. RITUXIMAB [Concomitant]
     Active Substance: RITUXIMAB
     Indication: Rheumatoid arthritis
     Route: 041
  517. RITUXIMAB [Concomitant]
     Active Substance: RITUXIMAB
  518. RITUXIMAB [Concomitant]
     Active Substance: RITUXIMAB
     Route: 042
  519. RITUXIMAB [Concomitant]
     Active Substance: RITUXIMAB
  520. RITUXIMAB [Concomitant]
     Active Substance: RITUXIMAB
     Route: 058
  521. RITUXIMAB [Concomitant]
     Active Substance: RITUXIMAB
  522. RITUXIMAB [Concomitant]
     Active Substance: RITUXIMAB
     Route: 043
  523. RITUXIMAB [Concomitant]
     Active Substance: RITUXIMAB
     Route: 042
  524. RITUXIMAB [Concomitant]
     Active Substance: RITUXIMAB
  525. RITUXIMAB [Concomitant]
     Active Substance: RITUXIMAB
     Route: 058
  526. RITUXIMAB [Concomitant]
     Active Substance: RITUXIMAB
     Route: 042
  527. RITUXIMAB [Concomitant]
     Active Substance: RITUXIMAB
  528. RITUXIMAB [Concomitant]
     Active Substance: RITUXIMAB
     Route: 042
  529. RITUXIMAB [Concomitant]
     Active Substance: RITUXIMAB
     Route: 042
  530. RITUXIMAB [Concomitant]
     Active Substance: RITUXIMAB
     Route: 042
  531. RITUXIMAB [Concomitant]
     Active Substance: RITUXIMAB
     Route: 042
  532. RITUXIMAB [Concomitant]
     Active Substance: RITUXIMAB
     Route: 042
  533. RITUXIMAB [Concomitant]
     Active Substance: RITUXIMAB
     Route: 040
  534. RITUXIMAB [Concomitant]
     Active Substance: RITUXIMAB
  535. RITUXIMAB [Concomitant]
     Active Substance: RITUXIMAB
     Route: 016
  536. RITUXIMAB [Concomitant]
     Active Substance: RITUXIMAB
  537. RITUXIMAB [Concomitant]
     Active Substance: RITUXIMAB
  538. RITUXIMAB [Concomitant]
     Active Substance: RITUXIMAB
  539. RITUXIMAB [Concomitant]
     Active Substance: RITUXIMAB
  540. RITUXIMAB [Concomitant]
     Active Substance: RITUXIMAB
     Route: 042
  541. RITUXIMAB [Concomitant]
     Active Substance: RITUXIMAB
     Route: 042
  542. RITUXIMAB [Concomitant]
     Active Substance: RITUXIMAB
     Route: 042
  543. RITUXIMAB [Concomitant]
     Active Substance: RITUXIMAB
     Route: 042
  544. RITUXIMAB [Concomitant]
     Active Substance: RITUXIMAB
     Route: 042
  545. RITUXIMAB [Concomitant]
     Active Substance: RITUXIMAB
     Route: 058
  546. RITUXIMAB [Concomitant]
     Active Substance: RITUXIMAB
     Route: 058
  547. RITUXIMAB [Concomitant]
     Active Substance: RITUXIMAB
     Route: 043
  548. RITUXIMAB [Concomitant]
     Active Substance: RITUXIMAB
     Route: 043
  549. RITUXIMAB [Concomitant]
     Active Substance: RITUXIMAB
     Route: 016
  550. RITUXIMAB [Concomitant]
     Active Substance: RITUXIMAB
     Route: 016
  551. RITUXIMAB [Concomitant]
     Active Substance: RITUXIMAB
  552. SULFASALAZINE [Concomitant]
     Active Substance: SULFASALAZINE
     Indication: Rheumatoid arthritis
  553. SULFASALAZINE [Concomitant]
     Active Substance: SULFASALAZINE
  554. SULFASALAZINE [Concomitant]
     Active Substance: SULFASALAZINE
     Route: 048
  555. SULFASALAZINE [Concomitant]
     Active Substance: SULFASALAZINE
     Route: 058
  556. SULFASALAZINE [Concomitant]
     Active Substance: SULFASALAZINE
     Route: 048
  557. SULFASALAZINE [Concomitant]
     Active Substance: SULFASALAZINE
     Route: 048
  558. SULFASALAZINE [Concomitant]
     Active Substance: SULFASALAZINE
     Route: 048
  559. SULFASALAZINE [Concomitant]
     Active Substance: SULFASALAZINE
  560. SULFASALAZINE [Concomitant]
     Active Substance: SULFASALAZINE
  561. SULFASALAZINE [Concomitant]
     Active Substance: SULFASALAZINE
     Route: 048
  562. SIMPONI [Concomitant]
     Active Substance: GOLIMUMAB
     Indication: Rheumatoid arthritis
     Dosage: SOLUTION SUBCUTANEOUS
     Route: 058
  563. SIMPONI [Concomitant]
     Active Substance: GOLIMUMAB
     Indication: Prostatic specific antigen
  564. SIMPONI [Concomitant]
     Active Substance: GOLIMUMAB
     Route: 058
  565. SIMPONI [Concomitant]
     Active Substance: GOLIMUMAB
  566. SIRUKUMAB [Concomitant]
     Active Substance: SIRUKUMAB
     Indication: Product used for unknown indication
  567. SIRUKUMAB [Concomitant]
     Active Substance: SIRUKUMAB
  568. GOLD SODIUM THIOMALATE [Concomitant]
     Active Substance: GOLD SODIUM THIOMALATE
     Indication: Product used for unknown indication
     Route: 048
  569. GOLD SODIUM THIOMALATE [Concomitant]
     Active Substance: GOLD SODIUM THIOMALATE
     Route: 058
  570. GOLD SODIUM THIOMALATE [Concomitant]
     Active Substance: GOLD SODIUM THIOMALATE
     Route: 030
  571. STELARA [Concomitant]
     Active Substance: USTEKINUMAB
     Indication: Rheumatoid arthritis
     Dosage: SOLUTION SUBCUTANEOUS
     Route: 058
  572. STELARA [Concomitant]
     Active Substance: USTEKINUMAB
  573. SULFASALAZINE [Concomitant]
     Active Substance: SULFASALAZINE
     Indication: Rheumatoid arthritis
     Route: 048
  574. SULFASALAZINE [Concomitant]
     Active Substance: SULFASALAZINE
     Route: 058
  575. SULFASALAZINE [Concomitant]
     Active Substance: SULFASALAZINE
     Route: 058
  576. SULFASALAZINE [Concomitant]
     Active Substance: SULFASALAZINE
     Route: 048
  577. SULFASALAZINE [Concomitant]
     Active Substance: SULFASALAZINE
     Route: 048
  578. SULFASALAZINE [Concomitant]
     Active Substance: SULFASALAZINE
     Route: 048
  579. SULFASALAZINE [Concomitant]
     Active Substance: SULFASALAZINE
     Route: 058
  580. SULFASALAZINE [Concomitant]
     Active Substance: SULFASALAZINE
     Route: 048
  581. SULFASALAZINE [Concomitant]
     Active Substance: SULFASALAZINE
     Route: 058
  582. SULFASALAZINE [Concomitant]
     Active Substance: SULFASALAZINE
     Route: 048
  583. SULFASALAZINE [Concomitant]
     Active Substance: SULFASALAZINE
     Route: 048
  584. SULFASALAZINE [Concomitant]
     Active Substance: SULFASALAZINE
     Route: 048
  585. SULFASALAZINE [Concomitant]
     Active Substance: SULFASALAZINE
     Route: 048
  586. SULFASALAZINE [Concomitant]
     Active Substance: SULFASALAZINE
     Route: 048
  587. SULFASALAZINE [Concomitant]
     Active Substance: SULFASALAZINE
     Route: 048
  588. TOCILIZUMAB [Concomitant]
     Active Substance: TOCILIZUMAB
     Indication: Rheumatoid arthritis
     Route: 058
  589. TOCILIZUMAB [Concomitant]
     Active Substance: TOCILIZUMAB
     Route: 042
  590. TOCILIZUMAB [Concomitant]
     Active Substance: TOCILIZUMAB
  591. TOCILIZUMAB [Concomitant]
     Active Substance: TOCILIZUMAB
     Route: 058
  592. TOCILIZUMAB [Concomitant]
     Active Substance: TOCILIZUMAB
     Route: 042
  593. TOFACITINIB [Concomitant]
     Active Substance: TOFACITINIB
     Indication: Rheumatoid arthritis
  594. TOFACITINIB [Concomitant]
     Active Substance: TOFACITINIB
     Route: 048
  595. TOFACITINIB [Concomitant]
     Active Substance: TOFACITINIB
  596. TOFACITINIB [Concomitant]
     Active Substance: TOFACITINIB
  597. TOFACITINIB CITRATE [Concomitant]
     Active Substance: TOFACITINIB CITRATE
     Indication: Rheumatoid arthritis
  598. TOFACITINIB CITRATE [Concomitant]
     Active Substance: TOFACITINIB CITRATE
     Route: 048
  599. TOFACITINIB CITRATE [Concomitant]
     Active Substance: TOFACITINIB CITRATE
  600. TOPIRAMATE [Concomitant]
     Active Substance: TOPIRAMATE
     Indication: Migraine
  601. TOPIRAMATE [Concomitant]
     Active Substance: TOPIRAMATE
  602. TOPIRAMATE [Concomitant]
     Active Substance: TOPIRAMATE
  603. TOPIRAMATE [Concomitant]
     Active Substance: TOPIRAMATE
  604. TOPIRAMATE [Concomitant]
     Active Substance: TOPIRAMATE
  605. TOPIRAMATE [Concomitant]
     Active Substance: TOPIRAMATE
  606. TRAMADOL HYDROCHLORIDE [Concomitant]
     Active Substance: TRAMADOL HYDROCHLORIDE
     Indication: Product used for unknown indication
     Dosage: SUSPENSION INTRA-ARTICULAR
  607. TRAMADOL HYDROCHLORIDE [Concomitant]
     Active Substance: TRAMADOL HYDROCHLORIDE
  608. USTEKINUMAB [Concomitant]
     Active Substance: USTEKINUMAB
     Indication: Product used for unknown indication
  609. USTEKINUMAB [Concomitant]
     Active Substance: USTEKINUMAB
     Route: 058
  610. VITAMIN C [Concomitant]
     Active Substance: ASCORBIC ACID
     Indication: Product used for unknown indication
  611. VITAMIN C [Concomitant]
     Active Substance: ASCORBIC ACID
  612. VITAMIN D3 [Concomitant]
     Active Substance: CHOLECALCIFEROL
     Indication: Product used for unknown indication
  613. XELJANZ [Concomitant]
     Active Substance: TOFACITINIB CITRATE
     Indication: Rheumatoid arthritis
     Route: 048
  614. XELJANZ [Concomitant]
     Active Substance: TOFACITINIB CITRATE
  615. XELJANZ [Concomitant]
     Active Substance: TOFACITINIB CITRATE
     Route: 048
  616. XELJANZ [Concomitant]
     Active Substance: TOFACITINIB CITRATE
  617. XELJANZ [Concomitant]
     Active Substance: TOFACITINIB CITRATE
     Route: 048
  618. XELJANZ [Concomitant]
     Active Substance: TOFACITINIB CITRATE
     Route: 048
  619. XELJANZ [Concomitant]
     Active Substance: TOFACITINIB CITRATE
     Route: 048
  620. XELJANZ [Concomitant]
     Active Substance: TOFACITINIB CITRATE
     Route: 048
  621. XELJANZ [Concomitant]
     Active Substance: TOFACITINIB CITRATE
  622. XELJANZ [Concomitant]
     Active Substance: TOFACITINIB CITRATE
  623. GOLD [Concomitant]
     Active Substance: GOLD
     Indication: Product used for unknown indication
  624. GOLD [Concomitant]
     Active Substance: GOLD
  625. HAIR KERATIN AMINO ACIDS GOLD COMPLEX [Concomitant]
     Active Substance: HAIR KERATIN AMINO ACIDS GOLD COMPLEX
     Indication: Product used for unknown indication
  626. DICLOFENAC POTASSIUM [Concomitant]
     Active Substance: DICLOFENAC POTASSIUM
     Indication: Product used for unknown indication
  627. MEGLUMINE [Concomitant]
     Active Substance: MEGLUMINE
     Indication: Product used for unknown indication
     Route: 042
  628. MEGLUMINE [Concomitant]
     Active Substance: MEGLUMINE
  629. MEGLUMINE [Concomitant]
     Active Substance: MEGLUMINE
     Route: 040
  630. ALENDRONATE SODIUM [Concomitant]
     Active Substance: ALENDRONATE SODIUM
     Indication: Rheumatoid arthritis
     Route: 048
  631. ALENDRONATE SODIUM [Concomitant]
     Active Substance: ALENDRONATE SODIUM
     Route: 048
  632. ALENDRONATE SODIUM [Concomitant]
     Active Substance: ALENDRONATE SODIUM
  633. DESOGESTREL AND ETHINYL ESTRADIOL [Concomitant]
     Active Substance: DESOGESTREL\ETHINYL ESTRADIOL
     Indication: Product used for unknown indication
  634. OTEZLA [Concomitant]
     Active Substance: APREMILAST
     Indication: Product used for unknown indication
  635. ALENDRONATE SODIUM\CHOLECALCIFEROL [Concomitant]
     Active Substance: ALENDRONATE SODIUM\CHOLECALCIFEROL
     Indication: Rheumatoid arthritis
     Route: 048
  636. CALCIUM ASCORBATE [Concomitant]
     Active Substance: CALCIUM ASCORBATE
     Indication: Product used for unknown indication
  637. CALCIUM CARBONATE [Concomitant]
     Active Substance: CALCIUM CARBONATE
     Indication: Product used for unknown indication
  638. CALCIUM CITRATE [Concomitant]
     Active Substance: CALCIUM CITRATE
     Indication: Product used for unknown indication
  639. CALCIUM GLUBIONATE [Concomitant]
     Active Substance: CALCIUM GLUBIONATE
     Indication: Product used for unknown indication
     Route: 016
  640. CHOLECALCIFEROL [Concomitant]
     Active Substance: CHOLECALCIFEROL
     Indication: Rheumatoid arthritis
  641. CHOLECALCIFEROL [Concomitant]
     Active Substance: CHOLECALCIFEROL
  642. CHLORHEXIDINE GLUCONATE\ISOPROPYL ALCOHOL [Concomitant]
     Active Substance: CHLORHEXIDINE GLUCONATE\ISOPROPYL ALCOHOL
     Indication: Product used for unknown indication
     Route: 061
  643. HYDROCORTISONE PROBUTATE [Concomitant]
     Active Substance: HYDROCORTISONE PROBUTATE
     Indication: Rheumatoid arthritis
  644. DIETARY SUPPLEMENT [Concomitant]
     Active Substance: DIETARY SUPPLEMENT
     Indication: Product used for unknown indication
  645. DICLOFENAC DIETHYLAMINE [Concomitant]
     Active Substance: DICLOFENAC DIETHYLAMINE
     Indication: Product used for unknown indication
  646. TRAMADOL HYDROCHLORIDE [Concomitant]
     Active Substance: TRAMADOL HYDROCHLORIDE
     Indication: Product used for unknown indication
  647. AZATHIOPRINE [Concomitant]
     Active Substance: AZATHIOPRINE
     Indication: Product used for unknown indication
  648. DESOGESTREL AND ETHINYL ESTRADIOL [Concomitant]
     Active Substance: DESOGESTREL\ETHINYL ESTRADIOL
     Indication: Product used for unknown indication
  649. SULFAMETHOXAZOLE\TRIMETHOPRIM [Concomitant]
     Active Substance: SULFAMETHOXAZOLE\TRIMETHOPRIM
     Indication: Product used for unknown indication
  650. CETIRIZINE [Concomitant]
     Active Substance: CETIRIZINE HYDROCHLORIDE
     Indication: Rheumatoid arthritis
     Route: 048
  651. CETIRIZINE [Concomitant]
     Active Substance: CETIRIZINE HYDROCHLORIDE
     Route: 048
  652. CETIRIZINE [Concomitant]
     Active Substance: CETIRIZINE HYDROCHLORIDE
     Route: 048
  653. CETIRIZINE [Concomitant]
     Active Substance: CETIRIZINE HYDROCHLORIDE
  654. CETIRIZINE [Concomitant]
     Active Substance: CETIRIZINE HYDROCHLORIDE
  655. CETIRIZINE [Concomitant]
     Active Substance: CETIRIZINE HYDROCHLORIDE
  656. CETIRIZINE [Concomitant]
     Active Substance: CETIRIZINE HYDROCHLORIDE
  657. CETIRIZINE [Concomitant]
     Active Substance: CETIRIZINE HYDROCHLORIDE
  658. RANITIDINE HYDROCHLORIDE [Concomitant]
     Active Substance: RANITIDINE HYDROCHLORIDE
     Indication: Product used for unknown indication
  659. ERGOCALCIFEROL [Concomitant]
     Active Substance: ERGOCALCIFEROL
     Indication: Product used for unknown indication
  660. ERGOCALCIFEROL [Concomitant]
     Active Substance: ERGOCALCIFEROL
  661. MAGNESIUM CITRATE [Concomitant]
     Active Substance: MAGNESIUM CITRATE
     Indication: Product used for unknown indication
  662. THIAMINE HYDROCHLORIDE [Concomitant]
     Active Substance: THIAMINE HYDROCHLORIDE
     Indication: Product used for unknown indication
  663. ATOMOXETINE HYDROCHLORIDE [Concomitant]
     Active Substance: ATOMOXETINE HYDROCHLORIDE
     Indication: Migraine
  664. HYDROCORTISONE\NEOMYCIN SULFATE [Concomitant]
     Active Substance: HYDROCORTISONE\NEOMYCIN SULFATE
     Indication: Product used for unknown indication
  665. ISOPROPYL ALCOHOL [Concomitant]
     Active Substance: ISOPROPYL ALCOHOL
     Indication: Product used for unknown indication
     Dosage: LIQUID TOPICAL
     Route: 061
  666. PERIOGARD [Concomitant]
     Active Substance: CHLORHEXIDINE GLUCONATE
     Indication: Product used for unknown indication
     Route: 061
  667. RIBOFLAVIN [Concomitant]
     Active Substance: RIBOFLAVIN
     Indication: Product used for unknown indication
  668. VITAMIN A [Concomitant]
     Active Substance: VITAMIN A
     Indication: Product used for unknown indication
  669. CALCIUM CARBONATE\CALCIUM GLUCONATE\CALCIUM LACTATE [Concomitant]
     Active Substance: CALCIUM CARBONATE\CALCIUM GLUCONATE\CALCIUM LACTATE
     Indication: Product used for unknown indication
  670. CHLORHEXIDINE GLUCONATE [Concomitant]
     Active Substance: CHLORHEXIDINE GLUCONATE
     Indication: Product used for unknown indication
  671. CHLORHEXIDINE GLUCONATE [Concomitant]
     Active Substance: CHLORHEXIDINE GLUCONATE
  672. CHLORHEXIDINE GLUCONATE [Concomitant]
     Active Substance: CHLORHEXIDINE GLUCONATE
  673. CHLORHEXIDINE GLUCONATE [Concomitant]
     Active Substance: CHLORHEXIDINE GLUCONATE
     Route: 061
  674. ACETAMINOPHEN AND CODEINE [Concomitant]
     Active Substance: ACETAMINOPHEN\CODEINE PHOSPHATE
     Indication: Rheumatoid arthritis
     Dosage: ACETAMINOPHEN+COD.PHOS.ELX, USP160MG-8MG/5ML, DOSAGE FORM: ELIXIR
  675. ACETAMINOPHEN AND CODEINE [Concomitant]
     Active Substance: ACETAMINOPHEN\CODEINE PHOSPHATE
  676. ALENDRONATE [Concomitant]
     Active Substance: ALENDRONATE SODIUM
     Indication: Rheumatoid arthritis
  677. FLUMETHASONE PIVALATE [Concomitant]
     Active Substance: FLUMETHASONE PIVALATE
     Indication: Product used for unknown indication
  678. FLUMETHASONE PIVALATE [Concomitant]
     Active Substance: FLUMETHASONE PIVALATE
     Route: 003
  679. ATIVAN [Concomitant]
     Active Substance: LORAZEPAM
     Indication: Anxiety
  680. CALCIUM [Concomitant]
     Active Substance: CALCIUM
     Indication: Product used for unknown indication
  681. CALCIUM GLUCONATE [Concomitant]
     Active Substance: CALCIUM GLUCONATE
     Indication: Product used for unknown indication
  682. CALCIUM LACTATE [Concomitant]
     Active Substance: CALCIUM LACTATE
     Indication: Product used for unknown indication
  683. CHLORHEXIDINE GLUCONATE [Concomitant]
     Active Substance: CHLORHEXIDINE GLUCONATE
     Indication: Product used for unknown indication
     Route: 061
  684. CYANOCOBALAMIN [Concomitant]
     Active Substance: CYANOCOBALAMIN
     Indication: Product used for unknown indication
  685. IRON\VITAMINS [Concomitant]
     Active Substance: IRON\VITAMINS
     Indication: Product used for unknown indication
  686. GLUCOSAMINE [Concomitant]
     Active Substance: GLUCOSAMINE
     Indication: Product used for unknown indication
  687. IBUPROFEN [Concomitant]
     Active Substance: IBUPROFEN
     Indication: Rheumatoid arthritis
  688. LANSOPRAZOLE [Concomitant]
     Active Substance: LANSOPRAZOLE
     Indication: Product used for unknown indication
  689. LISINOPRIL [Concomitant]
     Active Substance: LISINOPRIL
     Indication: Product used for unknown indication
  690. LORAZEPAM [Concomitant]
     Active Substance: LORAZEPAM
     Indication: Product used for unknown indication
  691. MAGNESIUM [Concomitant]
     Active Substance: MAGNESIUM
     Indication: Product used for unknown indication
  692. PANTOPRAZOLE [Concomitant]
     Active Substance: PANTOPRAZOLE
     Indication: Product used for unknown indication
  693. PANTOPRAZOLE [Concomitant]
     Active Substance: PANTOPRAZOLE
     Indication: Product used for unknown indication
  694. PREDNISOLONE [Concomitant]
     Active Substance: PREDNISOLONE
     Indication: Product used for unknown indication
  695. QUETIAPINE [Concomitant]
     Active Substance: QUETIAPINE
     Indication: Product used for unknown indication
  696. QUETIAPINE FUMARATE [Concomitant]
     Active Substance: QUETIAPINE FUMARATE
     Indication: Product used for unknown indication
  697. RISEDRONATE SODIUM [Concomitant]
     Active Substance: RISEDRONATE SODIUM
     Indication: Product used for unknown indication
  698. DIETARY SUPPLEMENT\HERBALS [Concomitant]
     Active Substance: DIETARY SUPPLEMENT\HERBALS
     Indication: Product used for unknown indication
     Route: 048
  699. FISH OIL [Concomitant]
     Active Substance: FISH OIL
     Indication: Product used for unknown indication
  700. TOPAMAX [Concomitant]
     Active Substance: TOPIRAMATE
     Indication: Migraine
     Route: 048
  701. TOPAMAX [Concomitant]
     Active Substance: TOPIRAMATE
     Route: 048
  702. TOPAMAX [Concomitant]
     Active Substance: TOPIRAMATE
  703. TOPAMAX [Concomitant]
     Active Substance: TOPIRAMATE
     Route: 048
  704. TOPAMAX [Concomitant]
     Active Substance: TOPIRAMATE
     Route: 048
  705. VITAMIN D3 [Concomitant]
     Active Substance: CHOLECALCIFEROL
     Indication: Product used for unknown indication
  706. FLUMETHASONE PIVALATE [Concomitant]
     Active Substance: FLUMETHASONE PIVALATE
     Indication: Product used for unknown indication
  707. FLUMETHASONE PIVALATE [Concomitant]
     Active Substance: FLUMETHASONE PIVALATE
     Route: 003
  708. MEGLUMINE [Concomitant]
     Active Substance: MEGLUMINE
     Indication: Product used for unknown indication
     Route: 040
  709. MEGLUMINE [Concomitant]
     Active Substance: MEGLUMINE
     Route: 042
  710. MEGLUMINE [Concomitant]
     Active Substance: MEGLUMINE
  711. ZINC [Concomitant]
     Active Substance: ZINC
     Indication: Rheumatoid arthritis
  712. TOPAMAX [Concomitant]
     Active Substance: TOPIRAMATE
     Indication: Migraine
     Route: 048
  713. TOPAMAX [Concomitant]
     Active Substance: TOPIRAMATE
     Route: 048
  714. TOPAMAX [Concomitant]
     Active Substance: TOPIRAMATE
  715. TOPAMAX [Concomitant]
     Active Substance: TOPIRAMATE
     Route: 048
  716. TOPAMAX [Concomitant]
     Active Substance: TOPIRAMATE
     Route: 048
  717. ERENUMAB-AOOE [Concomitant]
     Active Substance: ERENUMAB-AOOE
     Indication: Migraine
  718. ERENUMAB-AOOE [Concomitant]
     Active Substance: ERENUMAB-AOOE
     Indication: Rheumatoid arthritis
  719. DIETARY SUPPLEMENT\HERBALS [Concomitant]
     Active Substance: DIETARY SUPPLEMENT\HERBALS
     Indication: Product used for unknown indication
  720. IBUPROFEN [Concomitant]
     Active Substance: IBUPROFEN
     Indication: Product used for unknown indication
  721. PANTOPRAZOLE [Concomitant]
     Active Substance: PANTOPRAZOLE
     Indication: Product used for unknown indication
  722. PIROXICAM [Concomitant]
     Active Substance: PIROXICAM
     Indication: Product used for unknown indication
  723. PREDNISONE [Concomitant]
     Active Substance: PREDNISONE
     Indication: Rheumatoid arthritis
     Route: 048
  724. PANTOPRAZOLE SODIUM ANHYDROUS [Concomitant]
     Active Substance: PANTOPRAZOLE SODIUM ANHYDROUS
     Indication: Product used for unknown indication
  725. CAFFEINE [Concomitant]
     Active Substance: CAFFEINE
     Indication: Product used for unknown indication
  726. CAFFEINE CITRATE [Concomitant]
     Active Substance: CAFFEINE CITRATE
     Indication: Product used for unknown indication
  727. DOCONEXENT [Concomitant]
     Active Substance: DOCONEXENT
     Indication: Product used for unknown indication
  728. ICOSAPENT [Concomitant]
     Active Substance: ICOSAPENT
     Indication: Product used for unknown indication
  729. ELBASVIR [Concomitant]
     Active Substance: ELBASVIR
     Indication: Product used for unknown indication
  730. HYRIMOZ [Concomitant]
     Active Substance: ADALIMUMAB-ADAZ
     Indication: Rheumatoid arthritis
     Route: 048
  731. VITAMIN A AND D [ERGOCALCIFEROL;RETINOL] [Concomitant]
     Indication: Product used for unknown indication
  732. HYDROCORTISONE ACETATE [Concomitant]
     Active Substance: HYDROCORTISONE ACETATE
     Indication: Product used for unknown indication
  733. NICOTINAMIDE [Concomitant]
     Active Substance: NIACINAMIDE
     Indication: Product used for unknown indication
  734. BETAMETHASONE [Concomitant]
     Active Substance: BETAMETHASONE\BETAMETHASONE DIPROPIONATE
     Indication: Product used for unknown indication
  735. BUPRENORPHINE [Concomitant]
     Active Substance: BUPRENORPHINE
     Indication: Product used for unknown indication
  736. CELECOXIB [Concomitant]
     Active Substance: CELECOXIB
     Indication: Product used for unknown indication
  737. CELECOXIB [Concomitant]
     Active Substance: CELECOXIB
  738. CELECOXIB [Concomitant]
     Active Substance: CELECOXIB
  739. CELECOXIB [Concomitant]
     Active Substance: CELECOXIB
  740. CYCLOBENZAPRINE [Concomitant]
     Active Substance: CYCLOBENZAPRINE
     Indication: Product used for unknown indication
  741. CYCLOBENZAPRINE [Concomitant]
     Active Substance: CYCLOBENZAPRINE
  742. DICLOFENAC [Concomitant]
     Active Substance: DICLOFENAC
     Indication: Product used for unknown indication
  743. DOMPERIDONE [Concomitant]
     Active Substance: DOMPERIDONE
     Indication: Product used for unknown indication
  744. FINACEA [Concomitant]
     Active Substance: AZELAIC ACID
     Indication: Product used for unknown indication
  745. FLUTICASONE [Concomitant]
     Active Substance: FLUTICASONE
     Indication: Product used for unknown indication
  746. HYDROMORPHONE [Concomitant]
     Active Substance: HYDROMORPHONE
     Indication: Rheumatoid arthritis
  747. LAMOTRIGINE [Concomitant]
     Active Substance: LAMOTRIGINE
     Indication: Product used for unknown indication
     Route: 048
  748. LAMOTRIGINE [Concomitant]
     Active Substance: LAMOTRIGINE
     Route: 048
  749. LAMOTRIGINE [Concomitant]
     Active Substance: LAMOTRIGINE
  750. LAMOTRIGINE [Concomitant]
     Active Substance: LAMOTRIGINE
  751. LAMOTRIGINE [Concomitant]
     Active Substance: LAMOTRIGINE
     Route: 048
  752. LAMOTRIGINE [Concomitant]
     Active Substance: LAMOTRIGINE
  753. LEVOMILNACIPRAN [Concomitant]
     Active Substance: LEVOMILNACIPRAN
     Indication: Product used for unknown indication
  754. PHOSPHORUS [Concomitant]
     Active Substance: PHOSPHORUS
  755. TRAZODONE [Concomitant]
     Active Substance: TRAZODONE HYDROCHLORIDE
     Indication: Product used for unknown indication
  756. TRAZODONE [Concomitant]
     Active Substance: TRAZODONE HYDROCHLORIDE
  757. TRETINOIN [Concomitant]
     Active Substance: TRETINOIN
     Indication: Product used for unknown indication
  758. TRETINOIN [Concomitant]
     Active Substance: TRETINOIN
  759. DEXTROMETHORPHAN [Concomitant]
     Active Substance: DEXTROMETHORPHAN
     Indication: Product used for unknown indication
  760. ETANERCEPT [Concomitant]
     Active Substance: ETANERCEPT
     Indication: Rheumatoid arthritis
  761. METHOTREXATE SODIUM [Concomitant]
     Active Substance: METHOTREXATE SODIUM
     Indication: Rheumatoid arthritis
     Route: 048
  762. METHOTREXATE SODIUM [Concomitant]
     Active Substance: METHOTREXATE SODIUM
  763. METHOTREXATE SODIUM [Concomitant]
     Active Substance: METHOTREXATE SODIUM
     Route: 048
  764. METHOTREXATE SODIUM [Concomitant]
     Active Substance: METHOTREXATE SODIUM

REACTIONS (1)
  - Death [Fatal]
